FAERS Safety Report 9363668 (Version 1)
Quarter: 2013Q1

REPORT INFORMATION
  Report Type: Spontaneous
  Country: JP (occurrence: None)
  Receive Date: 20130308
  Receipt Date: 20130308
  Transmission Date: 20140127
  Serious: Yes (Death)
  Sender: FDA-Public Use
  Company Number: 2013-012230

PATIENT
  Age: 65 Year
  Sex: Male

DRUGS (6)
  1. BAY86-5321 [Suspect]
     Indication: DIABETIC RETINAL OEDEMA
     Dosage: TOAL OF 13
     Route: 031
     Dates: start: 20120131, end: 20121226
  2. ATELEC (CLINIDPINE) [Concomitant]
  3. NU-LOTAN (LOSARTAN POTASSIUM) [Concomitant]
  4. LASIX (FUROSEMIDE [FUROSEMIDE]) [Concomitant]
  5. NOVORAPID (INSULIN ASPART) [Concomitant]
  6. FAMOSTAGINE (FAMOTIDINE) [Concomitant]

REACTIONS (5)
  - Hypertensive heart disease [None]
  - Blood creatinine increased [None]
  - High density lipoprotein decreased [None]
  - Low density lipoprotein increased [None]
  - Cardio-respiratory arrest [None]
